FAERS Safety Report 15713844 (Version 1)
Quarter: 2018Q4

REPORT INFORMATION
  Report Type: Spontaneous
  Country: TR (occurrence: TR)
  Receive Date: 20181212
  Receipt Date: 20181212
  Transmission Date: 20190205
  Serious: Yes (Other)
  Sender: FDA-Public Use
  Company Number: TR-BAYER-2018-229242

PATIENT
  Sex: Male
  Weight: 102 kg

DRUGS (1)
  1. ASPIRIN 500 MG [Suspect]
     Active Substance: ASPIRIN
     Indication: ISCHAEMIC HEART DISEASE PROPHYLAXIS
     Dosage: UNK
     Dates: start: 20181010, end: 20181124

REACTIONS (3)
  - Product use in unapproved indication [None]
  - Off label use [None]
  - Dyspnoea [Not Recovered/Not Resolved]
